FAERS Safety Report 21333421 (Version 1)
Quarter: 2022Q3

REPORT INFORMATION
  Report Type: Other
  Country: US (occurrence: None)
  Receive Date: 20220914
  Receipt Date: 20220914
  Transmission Date: 20221027
  Serious: Yes (Other)
  Sender: FDA-Public Use
  Company Number: US-ROCHE-3175199

PATIENT
  Sex: Male

DRUGS (15)
  1. OCREVUS [Suspect]
     Active Substance: OCRELIZUMAB
     Indication: Relapsing multiple sclerosis
     Dosage: ON DAY 1 AND DAY 15 THEN 600 MG EVERY 6 MONTHS
     Route: 042
     Dates: start: 20210721, end: 20220331
  2. ZYRTEC [Concomitant]
     Active Substance: CETIRIZINE HYDROCHLORIDE
  3. BACLOFEN [Concomitant]
     Active Substance: BACLOFEN
  4. NEURONTIN [Concomitant]
     Active Substance: GABAPENTIN
  5. AMMONIUM LACTATE [Concomitant]
     Active Substance: AMMONIUM LACTATE
  6. KLONOPIN [Concomitant]
     Active Substance: CLONAZEPAM
  7. FLONASE [Concomitant]
     Active Substance: FLUTICASONE PROPIONATE
  8. ELAVIL [Concomitant]
     Active Substance: AMITRIPTYLINE HYDROCHLORIDE
  9. ASTELIN [Concomitant]
     Active Substance: AZELASTINE HYDROCHLORIDE
  10. COLACE [Concomitant]
     Active Substance: DOCUSATE SODIUM
  11. FIBER [Concomitant]
     Active Substance: PSYLLIUM HUSK
  12. KEPPRA [Concomitant]
     Active Substance: LEVETIRACETAM
  13. PRILOSEC [Concomitant]
     Active Substance: OMEPRAZOLE MAGNESIUM
  14. MIRALAX [Concomitant]
     Active Substance: POLYETHYLENE GLYCOL 3350
  15. PRAVASTATIN [Concomitant]
     Active Substance: PRAVASTATIN

REACTIONS (4)
  - Urinary tract infection [Recovered/Resolved]
  - Infection [Recovered/Resolved]
  - Pollakiuria [Unknown]
  - Pyrexia [Recovered/Resolved]

NARRATIVE: CASE EVENT DATE: 20220101
